FAERS Safety Report 9214809 (Version 4)
Quarter: 2016Q3

REPORT INFORMATION
  Report Type: Report from Study
  Country: JP (occurrence: JP)
  Receive Date: 20130405
  Receipt Date: 20160809
  Transmission Date: 20161109
  Serious: Yes (Death, Other)
  Sender: FDA-Public Use
  Company Number: JP-009507513-1304JPN001076

PATIENT
  Age: 77 Year
  Sex: Female
  Weight: 39 kg

DRUGS (15)
  1. FLUITRAN [Concomitant]
     Active Substance: TRICHLORMETHIAZIDE
     Indication: CARDIAC FAILURE
     Dosage: 1 MG, QD
     Route: 048
     Dates: end: 20130323
  2. VASOLAN [Concomitant]
     Active Substance: VERAPAMIL HYDROCHLORIDE
     Indication: ATRIAL FIBRILLATION
     Dosage: 40 MG, QD
     Route: 048
     Dates: end: 20130323
  3. DECADRON [Concomitant]
     Active Substance: DEXAMETHASONE
     Indication: HYPOGLYCAEMIA
     Dosage: 0.25 MG, QD
     Route: 048
     Dates: start: 20110708, end: 20130305
  4. MAGMITT [Concomitant]
     Active Substance: MAGNESIUM OXIDE
     Indication: CONSTIPATION
     Dosage: 2000 MG, QD
     Route: 048
     Dates: end: 20130323
  5. DIAZOXIDE CAPSULES 25 MG?MSD? [Suspect]
     Active Substance: DIAZOXIDE
     Dosage: 50 MG, BID
     Route: 048
     Dates: start: 20130319, end: 20130322
  6. LANIRAPID [Concomitant]
     Active Substance: METILDIGOXIN
     Indication: CARDIAC FAILURE
     Dosage: 0.25 MG, QD
     Route: 048
     Dates: end: 20130323
  7. WARFARIN POTASSIUM [Concomitant]
     Active Substance: WARFARIN POTASSIUM
     Indication: ATRIAL FIBRILLATION
     Dosage: 1.5 MG, QD
     Route: 048
     Dates: end: 20130323
  8. PROTECADIN [Concomitant]
     Active Substance: LAFUTIDINE
     Indication: GASTRIC DISORDER
     Dosage: 10 MG, BID
     Route: 048
     Dates: end: 20130323
  9. LASIX [Concomitant]
     Active Substance: FUROSEMIDE
     Dosage: 60MG-0-40MG, BID
     Route: 048
     Dates: end: 20130323
  10. ALDACTONE A [Concomitant]
     Active Substance: SPIRONOLACTONE
     Indication: CARDIAC FAILURE
     Dosage: 25 MG, QD
     Route: 048
     Dates: end: 20130323
  11. DEPAS [Concomitant]
     Active Substance: ETIZOLAM
     Indication: ANXIETY
     Dosage: 0.5 MG, QD
     Route: 048
     Dates: end: 20130323
  12. DIAZOXIDE CAPSULES 25 MG?MSD? [Suspect]
     Active Substance: DIAZOXIDE
     Indication: HYPOGLYCAEMIA
     Dosage: 75 MG, BID
     Route: 048
     Dates: start: 20130307, end: 20130318
  13. DIAZOXIDE CAPSULES 25 MG?MSD? [Suspect]
     Active Substance: DIAZOXIDE
     Dosage: 25-0-50 MG, BID
     Route: 048
     Dates: start: 20130323, end: 20130324
  14. LASIX [Concomitant]
     Active Substance: FUROSEMIDE
     Indication: CARDIAC FAILURE
     Dosage: 20 MG, QD
     Route: 065
     Dates: start: 20130319, end: 20130321
  15. LASIX [Concomitant]
     Active Substance: FUROSEMIDE
     Dosage: 60 MG, QD
     Route: 048
     Dates: start: 20130322

REACTIONS (1)
  - Cardiac failure [Fatal]

NARRATIVE: CASE EVENT DATE: 201303
